FAERS Safety Report 19840886 (Version 1)
Quarter: 2021Q3

REPORT INFORMATION
  Report Type: Spontaneous
  Country: DE (occurrence: DE)
  Receive Date: 20210916
  Receipt Date: 20210916
  Transmission Date: 20211014
  Serious: Yes (Hospitalization)
  Sender: FDA-Public Use
  Company Number: DE-TEVA-2021-DE-1951580

PATIENT
  Age: 65 Year
  Sex: Female
  Weight: 60 kg

DRUGS (13)
  1. MACROGOL [Suspect]
     Active Substance: POLYETHYLENE GLYCOLS
     Dosage: 1 DOSAGE FORMS DAILY; 1?0?0?0
     Route: 065
  2. AMPHOTERICIN B. [Concomitant]
     Active Substance: AMPHOTERICIN B
     Dosage: 2 DOSAGE FORMS DAILY; 1?0?1?0
  3. DEXAMETHASONE. [Concomitant]
     Active Substance: DEXAMETHASONE
     Dosage: 40 MG, SCHEME
  4. SULFAMETHOXAZOLE W/TRIMETHOPRIM [Concomitant]
     Active Substance: SULFAMETHOXAZOLE\TRIMETHOPRIM
     Dosage: 960 MG, SCHEME
  5. BISOPROLOL [Concomitant]
     Active Substance: BISOPROLOL
     Dosage: 2.5 MILLIGRAM DAILY;  1?0?0?0
  6. FOLIC ACID. [Concomitant]
     Active Substance: FOLIC ACID
     Dosage: 5 MG, SCHEME
  7. PANTOPRAZOL [Concomitant]
     Active Substance: PANTOPRAZOLE SODIUM
     Dosage: 40 MILLIGRAM DAILY; 1?0?0?0
  8. PREGABALIN. [Concomitant]
     Active Substance: PREGABALIN
     Dosage: 50 MILLIGRAM DAILY; 25 MG, 1?0?1?0
  9. ACICLOVIR [Concomitant]
     Active Substance: ACYCLOVIR
     Dosage: 600 MILLIGRAM DAILY; 1?1?1?0
  10. CALCIUMCHLORID/CARMELLOSE/KALIUMCHLORID/KALIUMPHOSPHAT/MAGNESIUMCHLORI [Concomitant]
     Dosage: 4 DOSAGE FORMS DAILY; 1?1?1?1
  11. POMALIDOMIDE [Concomitant]
     Active Substance: POMALIDOMIDE
     Dosage: 4 MG, SCHEME
  12. COLECALCIFEROL [Concomitant]
     Active Substance: CHOLECALCIFEROL
     Dosage: 20000 IU, SCHEME
  13. HYDROMORPHONE [Suspect]
     Active Substance: HYDROMORPHONE
     Dosage: 8 MG, 1?0?1.5?0
     Route: 065

REACTIONS (5)
  - Abdominal pain [Unknown]
  - Constipation [Unknown]
  - General physical health deterioration [Unknown]
  - Urinary hesitation [Unknown]
  - Anaemia [Unknown]
